FAERS Safety Report 12301007 (Version 1)
Quarter: 2016Q2

REPORT INFORMATION
  Report Type: Report from Study
  Country: US (occurrence: US)
  Receive Date: 20160425
  Receipt Date: 20160425
  Transmission Date: 20160815
  Serious: Yes (Hospitalization, Other)
  Sender: FDA-Public Use
  Company Number: US-UCBSA-2016014744

PATIENT
  Sex: Female

DRUGS (4)
  1. CERTOLIZUMAB PEGOL [Suspect]
     Active Substance: CERTOLIZUMAB PEGOL
     Indication: CROHN^S DISEASE
     Dosage: UNK
  2. OXYCONTIN [Concomitant]
     Active Substance: OXYCODONE HYDROCHLORIDE
     Indication: PRODUCT USED FOR UNKNOWN INDICATION
     Dosage: 6-9 20 MG EVERYDAY
  3. PERCOCET [Concomitant]
     Active Substance: ACETAMINOPHEN\OXYCODONE HYDROCHLORIDE
     Indication: PRODUCT USED FOR UNKNOWN INDICATION
     Dosage: 4-6, AS NEEDED (PRN)
  4. CERTOLIZUMAB PEGOL [Suspect]
     Active Substance: CERTOLIZUMAB PEGOL
     Dosage: 1 DF, EV 2 WEEKS(QOW)

REACTIONS (14)
  - Scar [Unknown]
  - Arthralgia [Unknown]
  - Abdominal pain [Unknown]
  - Haemorrhage [Unknown]
  - Abdominal tenderness [Unknown]
  - Drug effect decreased [Unknown]
  - Anaphylactic reaction [Unknown]
  - Dizziness [Unknown]
  - Alopecia [Unknown]
  - Malaise [Unknown]
  - Headache [Unknown]
  - Nausea [Unknown]
  - Musculoskeletal discomfort [Unknown]
  - Myalgia [Unknown]
